FAERS Safety Report 8500429-6 (Version None)
Quarter: 2012Q3

REPORT INFORMATION
  Report Type: 
  Country: None (occurrence: None)
  Receive Date: 20120710
  Receipt Date: 20120416
  Transmission Date: 20120928
  Serious: Yes (Hospitalization)
  Sender: FDA-Public Use
  Company Number: CA-GLAXOSMITHKLINE-A0973918A

PATIENT
  Sex: Female
  Weight: 100 kg

DRUGS (1)
  1. ADVAIR DISKUS 100/50 [Suspect]
     Indication: ASTHMA
     Dosage: 1PUFF TWICE PER DAY
     Route: 055
     Dates: start: 20080101, end: 20110901

REACTIONS (9)
  - WHEEZING [None]
  - PNEUMONIA [None]
  - OROPHARYNGEAL PAIN [None]
  - DYSPNOEA [None]
  - DYSPHONIA [None]
  - LARYNGITIS [None]
  - VIRAL INFECTION [None]
  - NASOPHARYNGITIS [None]
  - BRONCHITIS [None]
